FAERS Safety Report 19466831 (Version 1)
Quarter: 2021Q2

REPORT INFORMATION
  Report Type: Spontaneous
  Country: NO (occurrence: NO)
  Receive Date: 20210628
  Receipt Date: 20210628
  Transmission Date: 20210717
  Serious: Yes (Hospitalization)
  Sender: FDA-Public Use
  Company Number: NO-NOVOPROD-821717

PATIENT
  Age: 29 Year
  Sex: Male

DRUGS (1)
  1. OZEMPIC [Suspect]
     Active Substance: SEMAGLUTIDE
     Indication: OVERWEIGHT
     Dosage: UNK
     Route: 058
     Dates: start: 202102, end: 20210528

REACTIONS (5)
  - Vomiting [Unknown]
  - Off label use [Recovered/Resolved]
  - Withdrawal syndrome [Unknown]
  - Diarrhoea [Unknown]
  - Abdominal pain [Unknown]

NARRATIVE: CASE EVENT DATE: 202102
